FAERS Safety Report 8229532-5 (Version None)
Quarter: 2012Q1

REPORT INFORMATION
  Report Type: 
  Country: None (occurrence: None)
  Receive Date: 20120322
  Receipt Date: 20120308
  Transmission Date: 20120608
  Serious: Yes (Other)
  Sender: FDA-Public Use
  Company Number: CHPA2012US004784

PATIENT
  Age: 60 Year
  Sex: Female

DRUGS (3)
  1. VICKS SPRAY NASAL [Concomitant]
  2. PHENYLEPHRINE HYDROCHLORIDE [Suspect]
     Dosage: UNK, UNK
     Route: 045
     Dates: end: 20120201
  3. DRUG THERAPY NOS [Concomitant]

REACTIONS (3)
  - DRUG DEPENDENCE [None]
  - MUCOSAL DRYNESS [None]
  - RHINORRHOEA [None]
